FAERS Safety Report 17564569 (Version 1)
Quarter: 2020Q1

REPORT INFORMATION
  Report Type: Spontaneous
  Country: US (occurrence: US)
  Receive Date: 20200320
  Receipt Date: 20200320
  Transmission Date: 20200409
  Serious: No
  Sender: FDA-Public Use
  Company Number: US-KARYOPHARM-2020KPT000068

PATIENT

DRUGS (5)
  1. ZOFRAN [Concomitant]
     Active Substance: ONDANSETRON HYDROCHLORIDE
     Indication: NAUSEA
     Dosage: UNK
  2. ZOFRAN [Concomitant]
     Active Substance: ONDANSETRON HYDROCHLORIDE
     Indication: VOMITING
  3. XPOVIO [Suspect]
     Active Substance: SELINEXOR
     Dosage: 40 MG, WEEKLY
     Route: 048
     Dates: start: 20200131
  4. XPOVIO [Suspect]
     Active Substance: SELINEXOR
     Indication: PLASMA CELL MYELOMA
     Dosage: 80 MG, 2X/WEEK
     Route: 048
     Dates: start: 20200117
  5. DEXAMETHASONE. [Concomitant]
     Active Substance: DEXAMETHASONE
     Indication: NAUSEA

REACTIONS (9)
  - Sinusitis [Unknown]
  - Fatigue [Unknown]
  - Insomnia [Unknown]
  - Dehydration [Unknown]
  - Anaemia [Unknown]
  - Dysphonia [Unknown]
  - Dyspnoea [Unknown]
  - Nausea [Unknown]
  - Decreased appetite [Unknown]

NARRATIVE: CASE EVENT DATE: 2020
